FAERS Safety Report 7473392-7 (Version None)
Quarter: 2011Q2

REPORT INFORMATION
  Report Type: 
  Country: None (occurrence: None)
  Receive Date: 20110511
  Receipt Date: 20110510
  Transmission Date: 20111010
  Serious: Yes (Hospitalization)
  Sender: FDA-Public Use
  Company Number: NL-ROCHE-776265

PATIENT
  Sex: Male
  Weight: 79.6 kg

DRUGS (5)
  1. SERESTA [Concomitant]
  2. AVASTIN [Suspect]
     Indication: NON-SMALL CELL LUNG CANCER
     Dosage: LAST COURSE: 02 MAY 2011
     Route: 042
     Dates: start: 20110502
  3. PACLITAXEL [Suspect]
     Indication: NON-SMALL CELL LUNG CANCER
     Dosage: LAST COURSE: 02 MAY 2011
     Route: 042
     Dates: start: 20110502
  4. CARBOPLATIN [Suspect]
     Indication: NON-SMALL CELL LUNG CANCER
     Dosage: LAST COURSE: 02 MAY 2011
     Route: 042
     Dates: start: 20110502
  5. ASCAL [Concomitant]

REACTIONS (1)
  - FRONTOTEMPORAL DEMENTIA [None]
